FAERS Safety Report 18436708 (Version 2)
Quarter: 2020Q4

REPORT INFORMATION
  Report Type: Report from Study
  Country: US (occurrence: US)
  Receive Date: 20201028
  Receipt Date: 20201217
  Transmission Date: 20210114
  Serious: Yes (Hospitalization, Other)
  Sender: FDA-Public Use
  Company Number: US-BIOVITRUM-2020US3832

PATIENT
  Age: 54 Year
  Sex: Male

DRUGS (1)
  1. KINERET [Suspect]
     Active Substance: ANAKINRA
     Indication: INFECTION
     Route: 058
     Dates: start: 20200703

REACTIONS (4)
  - COVID-19 [Unknown]
  - Fatigue [Unknown]
  - Off label use [Not Recovered/Not Resolved]
  - Product dose omission issue [Unknown]

NARRATIVE: CASE EVENT DATE: 20200702
